FAERS Safety Report 10380702 (Version 1)
Quarter: 2014Q3

REPORT INFORMATION
  Report Type: Other
  Country: DE (occurrence: DE)
  Receive Date: 20140813
  Receipt Date: 20140813
  Transmission Date: 20150326
  Serious: Yes (Other)
  Sender: FDA-Public Use
  Company Number: DE-SUN PHARMACEUTICAL INDUSTRIES LTD-2014SUN01892

PATIENT

DRUGS (5)
  1. L-THYROXIN [Concomitant]
     Active Substance: LEVOTHYROXINE SODIUM
     Indication: HYPOTHYROIDISM
     Dosage: 75 MCG, UNK
     Route: 048
     Dates: start: 20130512, end: 20140102
  2. FOLIO [Concomitant]
     Active Substance: FOLIC ACID
     Indication: PROPHYLAXIS OF NEURAL TUBE DEFECT
     Dosage: 0.4 MG/D
     Route: 048
     Dates: start: 20130512, end: 20140102
  3. VENLAFAXINE HYDROCHLORIDE 37.5MG TABLET [Suspect]
     Active Substance: VENLAFAXINE HYDROCHLORIDE
     Indication: DEPRESSION
     Dosage: 75 MG, OD
     Route: 048
     Dates: start: 20130512, end: 20140102
  4. METFORMIN [Concomitant]
     Active Substance: METFORMIN HYDROCHLORIDE
     Indication: INSULIN RESISTANCE
     Dosage: 2500 MG (1000MG-500MG-1000MG)
     Route: 048
  5. LATANO TIM-VISION [Concomitant]
     Indication: GLAUCOMA
     Dosage: UNK
     Route: 047
     Dates: end: 20140102

REACTIONS (3)
  - Premature labour [Unknown]
  - Pre-eclampsia [Unknown]
  - Exposure during pregnancy [Unknown]

NARRATIVE: CASE EVENT DATE: 20130512
